FAERS Safety Report 7016958-0 (Version None)
Quarter: 2010Q3

REPORT INFORMATION
  Report Type: 
  Country: None (occurrence: None)
  Receive Date: 20100927
  Receipt Date: 20100818
  Transmission Date: 20110219
  Serious: No
  Sender: FDA-Public Use
  Company Number: US-PFIZER INC-2010104351

PATIENT
  Sex: Female
  Weight: 45.351 kg

DRUGS (3)
  1. ZITHROMAX [Suspect]
     Indication: PNEUMONIA
     Dosage: 2 PILLS, DAILY
     Route: 048
     Dates: start: 20100620, end: 20100621
  2. ZITHROMAX [Suspect]
     Dosage: ONE PILL, DAILY
     Route: 048
     Dates: start: 20100622, end: 20100625
  3. ALBUTEROL [Suspect]
     Indication: PNEUMONIA
     Dosage: UNK
     Dates: start: 20100623

REACTIONS (4)
  - LIP SWELLING [None]
  - ORAL PRURITUS [None]
  - PARAESTHESIA ORAL [None]
  - URTICARIA [None]
